FAERS Safety Report 5404800-0 (Version None)
Quarter: 2007Q3

REPORT INFORMATION
  Report Type: 
  Country: None (occurrence: None)
  Receive Date: 20070803
  Receipt Date: 20070727
  Transmission Date: 20080115
  Serious: Yes (Other)
  Sender: FDA-Public Use
  Company Number: PHEH2007US10445

PATIENT
  Age: 55 Year
  Sex: Female
  Weight: 70.294 kg

DRUGS (10)
  1. VIVELLE [Suspect]
     Indication: MENOPAUSE
     Dosage: 0.05 MG, UNK
     Route: 062
     Dates: start: 19960601
  2. ESTRADERM [Suspect]
     Indication: MENOPAUSAL SYMPTOMS
     Dosage: 0.5 MG
     Route: 062
     Dates: start: 19910502, end: 19960624
  3. CARDIZEM [Concomitant]
     Indication: HYPERTENSION
     Route: 048
  4. COZAAR [Concomitant]
     Dosage: 25 MG, QD
     Route: 048
  5. PRILOSEC [Concomitant]
     Route: 048
  6. DIGOXIN [Concomitant]
     Dosage: 0.25 MG, QD
     Route: 048
  7. CLIMARA [Suspect]
     Indication: MENOPAUSE
     Dosage: 0.5 MG, UNK
     Route: 062
     Dates: start: 19960624, end: 19970717
  8. PROVERA [Suspect]
     Indication: HAEMORRHAGE
     Dosage: 2.5 MG, UNK
     Route: 048
     Dates: start: 19910710, end: 19910717
  9. PREMPRO [Suspect]
     Indication: MENOPAUSE
     Dates: start: 19970701, end: 19990801
  10. PREMARIN [Suspect]
     Indication: SMEAR CERVIX ABNORMAL
     Route: 061
     Dates: start: 19970701

REACTIONS (37)
  - ANAEMIA [None]
  - ANXIETY [None]
  - ATRIAL FIBRILLATION [None]
  - BIOPSY BREAST [None]
  - BIOPSY BREAST ABNORMAL [None]
  - BREAST CANCER [None]
  - BREAST CELLULITIS [None]
  - BREAST DISORDER FEMALE [None]
  - BREAST MASS [None]
  - BRONCHIAL HYPERREACTIVITY [None]
  - CARDIAC VALVE DISEASE [None]
  - CARDIOMYOPATHY [None]
  - CARPAL TUNNEL SYNDROME [None]
  - CERVICAL DYSPLASIA [None]
  - CERVIX DISORDER [None]
  - CRYOTHERAPY [None]
  - DEPRESSION [None]
  - DYSPNOEA [None]
  - EJECTION FRACTION DECREASED [None]
  - ERYTHEMA [None]
  - HEPATITIS C [None]
  - LUNG ADENOCARCINOMA STAGE III [None]
  - LUNG LOBECTOMY [None]
  - LYMPHADENECTOMY [None]
  - LYMPHOEDEMA [None]
  - MALIGNANT BREAST LUMP REMOVAL [None]
  - MAMMOGRAM ABNORMAL [None]
  - MYALGIA [None]
  - OSTEOARTHRITIS [None]
  - PEPTIC ULCER [None]
  - RADIATION SKIN INJURY [None]
  - RADIOTHERAPY [None]
  - SCAR [None]
  - SKIN HYPERTROPHY [None]
  - SMEAR CERVIX ABNORMAL [None]
  - SQUAMOUS CELL CARCINOMA OF SKIN [None]
  - TUBAL LIGATION [None]
